FAERS Safety Report 12221521 (Version 1)
Quarter: 2016Q1

REPORT INFORMATION
  Report Type: Spontaneous
  Country: US (occurrence: US)
  Receive Date: 20160330
  Receipt Date: 20160330
  Transmission Date: 20160526
  Serious: Yes (Other)
  Sender: FDA-Public Use
  Company Number: US-MDT-ADR-2016-00241

PATIENT
  Sex: Female

DRUGS (10)
  1. PREDNISONE. [Suspect]
     Active Substance: PREDNISONE
  2. LIORESAL [Suspect]
     Active Substance: BACLOFEN
     Dosage: 187.3 MCG/DAY
     Route: 037
     Dates: start: 20150603, end: 20150623
  3. NORCO [Suspect]
     Active Substance: ACETAMINOPHEN\HYDROCODONE BITARTRATE
  4. TYLENOL [Suspect]
     Active Substance: ACETAMINOPHEN
  5. PHENOBARBITAL. [Suspect]
     Active Substance: PHENOBARBITAL
  6. BACLOFEN. [Suspect]
     Active Substance: BACLOFEN
  7. MELOXICAM. [Suspect]
     Active Substance: MELOXICAM
  8. VOLTAREN [Suspect]
     Active Substance: DICLOFENAC SODIUM
  9. OXYBUTYNIN [Suspect]
     Active Substance: OXYBUTYNIN
  10. FOSAMAX [Suspect]
     Active Substance: ALENDRONATE SODIUM

REACTIONS (12)
  - Pruritus [Unknown]
  - Asthenia [Unknown]
  - Medical device site infection [Unknown]
  - Staphylococcus test positive [Unknown]
  - Lethargy [Unknown]
  - Medical device site discharge [Unknown]
  - Pyrexia [Unknown]
  - Incision site infection [Unknown]
  - Medical device site erythema [Unknown]
  - Leukocytosis [Unknown]
  - Dermatitis contact [Unknown]
  - Incision site erythema [Unknown]
